FAERS Safety Report 10197195 (Version 1)
Quarter: 2014Q2

REPORT INFORMATION
  Report Type: Spontaneous
  Country: US (occurrence: US)
  Receive Date: 20140527
  Receipt Date: 20140527
  Transmission Date: 20141212
  Serious: Yes (Hospitalization)
  Sender: FDA-Public Use
  Company Number: US-GLAXOSMITHKLINE-A1073775A

PATIENT
  Age: 90 Year
  Sex: Male

DRUGS (4)
  1. ADVAIR [Suspect]
     Indication: ASTHMA
     Dosage: 1PUFF PER DAY
     Route: 055
     Dates: end: 20140518
  2. PROVENTIL [Concomitant]
  3. NEXIUM [Concomitant]
  4. AMBIEN [Concomitant]

REACTIONS (6)
  - Dizziness [Not Recovered/Not Resolved]
  - Tremor [Unknown]
  - Dyspnoea [Unknown]
  - Gait disturbance [Unknown]
  - Impaired driving ability [Unknown]
  - Discomfort [Unknown]
